FAERS Safety Report 5397623-2 (Version None)
Quarter: 2007Q3

REPORT INFORMATION
  Report Type: 
  Country: None (occurrence: None)
  Receive Date: 20070726
  Receipt Date: 20070723
  Transmission Date: 20080115
  Serious: Yes (Death)
  Sender: FDA-Public Use
  Company Number: FR-BAYER-200611021BFR

PATIENT
  Age: 67 Year
  Sex: Female
  Weight: 79 kg

DRUGS (13)
  1. SORAFENIB [Suspect]
     Indication: RENAL CELL CARCINOMA STAGE UNSPECIFIED
     Dosage: TOTAL DAILY DOSE: 800 MG  UNIT DOSE: 200 MG
     Route: 048
     Dates: start: 20060322, end: 20060407
  2. SORAFENIB [Suspect]
     Dosage: TOTAL DAILY DOSE: 800 MG  UNIT DOSE: 200 MG
     Route: 048
     Dates: start: 20060407, end: 20060429
  3. SORAFENIB [Suspect]
     Dosage: TOTAL DAILY DOSE: 600 MG  UNIT DOSE: 200 MG
     Route: 048
     Dates: start: 20060429, end: 20060509
  4. SORAFENIB [Suspect]
     Dosage: TOTAL DAILY DOSE: 400 MG  UNIT DOSE: 200 MG
     Route: 048
     Dates: start: 20060509, end: 20060619
  5. LEVOTHYROXINE SODIUM [Concomitant]
     Indication: THYROID FUNCTION TEST ABNORMAL
     Route: 065
     Dates: start: 20000701
  6. DI-ANTALVIC [Concomitant]
     Indication: MUSCULOSKELETAL PAIN
     Route: 065
     Dates: start: 19950701
  7. CHONDROSULF [Concomitant]
     Indication: MUSCULOSKELETAL PAIN
     Route: 065
     Dates: start: 19950701
  8. ENDOTELON [Concomitant]
     Indication: VENOUS STASIS
     Route: 065
     Dates: start: 19950701
  9. SEROPRAM [Concomitant]
     Indication: DEPRESSION
     Route: 065
     Dates: start: 20050501
  10. OESTRODOSE [Concomitant]
     Indication: MENOPAUSE
     Route: 065
  11. HYTACAND [Concomitant]
     Indication: HYPERTENSION
     Route: 065
     Dates: end: 20060403
  12. ATACAND [Concomitant]
     Indication: HYPERTENSION
     Route: 065
     Dates: start: 20060403, end: 20060418
  13. SOLU-MEDROL [Concomitant]
     Indication: ANAEMIA
     Route: 065
     Dates: start: 20060613

REACTIONS (1)
  - ACUTE MYELOID LEUKAEMIA [None]
